FAERS Safety Report 9262329 (Version 1)
Quarter: 2013Q2

REPORT INFORMATION
  Report Type: Spontaneous
  Country: US (occurrence: None)
  Receive Date: 20130425
  Receipt Date: 20130425
  Transmission Date: 20140414
  Serious: Yes (Other)
  Sender: FDA-Public Use
  Company Number: None

PATIENT
  Age: 45 Year
  Sex: Female
  Weight: 58.97 kg

DRUGS (2)
  1. CHANTIX [Suspect]
     Route: 048
     Dates: start: 20110325, end: 20110523
  2. XYREM [Suspect]
     Dosage: TWICE NIGHTLY
     Route: 048
     Dates: start: 20101002, end: 20110723

REACTIONS (1)
  - Mental disorder [None]
